FAERS Safety Report 8416442-3 (Version None)
Quarter: 2012Q2

REPORT INFORMATION
  Report Type: 
  Country: None (occurrence: None)
  Receive Date: 20120606
  Receipt Date: 20120604
  Transmission Date: 20120825
  Serious: Yes (Death, Life-Threatening, Other)
  Sender: FDA-Public Use
  Company Number: US-ROCHE-1074754

PATIENT
  Age: 65 Year
  Sex: Female
  Weight: 150.55 kg

DRUGS (4)
  1. EVEROLIMUS [Suspect]
     Indication: METASTATIC MALIGNANT MELANOMA
     Dates: start: 20120518
  2. CARBOPLATIN [Suspect]
     Indication: METASTATIC MALIGNANT MELANOMA
     Dosage: 5 AUC
     Route: 042
     Dates: start: 20120518
  3. PACLITAXEL [Suspect]
     Indication: METASTATIC MALIGNANT MELANOMA
     Dosage: LAST DOSE TAKEN ON 18/MAY/2012
     Route: 042
     Dates: start: 20120518
  4. AVASTIN [Suspect]
     Indication: METASTATIC MALIGNANT MELANOMA
     Dosage: LAST DOSE TAKEN 18/MAY/2012
     Route: 042
     Dates: start: 20120518

REACTIONS (5)
  - PLATELET COUNT DECREASED [None]
  - SEPSIS [None]
  - NEUTROPHIL COUNT DECREASED [None]
  - RENAL FAILURE ACUTE [None]
  - DIARRHOEA [None]
